FAERS Safety Report 24353312 (Version 1)
Quarter: 2024Q3

REPORT INFORMATION
  Report Type: Report from Study
  Country: CO (occurrence: CO)
  Receive Date: 20240923
  Receipt Date: 20240923
  Transmission Date: 20241017
  Serious: No
  Sender: ROCHE
  Company Number: CO-ROCHE-3452238

PATIENT
  Age: 54 Year
  Sex: Female
  Weight: 59.0 kg

DRUGS (6)
  1. HERCEPTIN [Suspect]
     Active Substance: TRASTUZUMAB
     Indication: Breast cancer
     Route: 041
     Dates: start: 202209
  2. PREGABALIN [Concomitant]
     Active Substance: PREGABALIN
  3. CLONIDINE [Concomitant]
     Active Substance: CLONIDINE
  4. VITAMIN C [Concomitant]
     Active Substance: ASCORBIC ACID
  5. LEVETIRACETAM [Concomitant]
     Active Substance: LEVETIRACETAM
  6. ACETAMINOPHEN [Concomitant]
     Active Substance: ACETAMINOPHEN

REACTIONS (3)
  - Oedema peripheral [Recovered/Resolved]
  - Headache [Recovered/Resolved]
  - Ear pain [Recovered/Resolved]

NARRATIVE: CASE EVENT DATE: 20231024
